FAERS Safety Report 11547189 (Version 1)
Quarter: 2015Q3

REPORT INFORMATION
  Report Type: Spontaneous
  Country: US (occurrence: US)
  Receive Date: 20150924
  Receipt Date: 20150924
  Transmission Date: 20151125
  Serious: No
  Sender: FDA-Public Use
  Company Number: US-BAYER-2015-428843

PATIENT
  Age: 82 Year
  Sex: Male
  Weight: 86.17 kg

DRUGS (3)
  1. DOXAZOSIN [Concomitant]
     Active Substance: DOXAZOSIN\DOXAZOSIN MESYLATE
     Dosage: UNK
  2. CLARITIN REDITABS [Suspect]
     Active Substance: LORATADINE
     Indication: SUPPORTIVE CARE
     Dosage: 1 DF, QD
     Route: 048
     Dates: start: 201507
  3. METOPROLOL [Concomitant]
     Active Substance: METOPROLOL
     Dosage: UNK

REACTIONS (1)
  - Product use issue [None]
